FAERS Safety Report 8063204-5 (Version None)
Quarter: 2012Q1

REPORT INFORMATION
  Report Type: 
  Country: None (occurrence: None)
  Receive Date: 20120123
  Receipt Date: 20120119
  Transmission Date: 20120608
  Serious: Yes (Hospitalization)
  Sender: FDA-Public Use
  Company Number: PHHO2011KR01094

PATIENT
  Sex: Male
  Weight: 63 kg

DRUGS (11)
  1. BLINDED NO TREATMENT RECEIVED [Suspect]
     Dosage: CODE NOT BROKEN
     Route: 048
     Dates: start: 20101126
  2. ATORVASTATIN [Concomitant]
  3. LACIDOFIL [Concomitant]
     Dosage: 20 MG, TID
     Dates: start: 20101215, end: 20110308
  4. ENALAPRIL MALEATE [Suspect]
     Dosage: CODE NOT BROKEN
     Route: 048
     Dates: start: 20101126
  5. MAGNESIUM HYDROXIDE TAB [Concomitant]
     Dosage: 500 MG, QD
     Dates: start: 20110112, end: 20110222
  6. TRIMEBUTINE MALEATE [Concomitant]
     Dosage: 150 MG, TID
     Dates: start: 20100215, end: 20100308
  7. BLINDED ALISKIREN [Suspect]
     Dosage: CODE NOT BROKEN
     Route: 048
     Dates: start: 20101126
  8. CARVEDILOL [Concomitant]
     Indication: CARDIAC FAILURE CONGESTIVE
  9. TORSEMIDE [Concomitant]
     Indication: CARDIAC FAILURE CONGESTIVE
  10. MAGNESIUM HYDROXIDE TAB [Concomitant]
     Dosage: 500 MG, QD
     Dates: start: 20101208, end: 20101214
  11. POLYCARBOPHIL CALCIUM [Concomitant]
     Dosage: 150 MG, TID
     Dates: start: 20101215, end: 20110308

REACTIONS (2)
  - COLON ADENOMA [None]
  - CONSTIPATION [None]
